FAERS Safety Report 9032379 (Version 1)
Quarter: 2013Q1

REPORT INFORMATION
  Report Type: Spontaneous
  Country: JP (occurrence: None)
  Receive Date: 20130108
  Receipt Date: 20130108
  Transmission Date: 20140127
  Serious: Yes (Hospitalization)
  Sender: FDA-Public Use
  Company Number: DSA_61769_2013

PATIENT
  Age: 63 Year
  Sex: Male
  Weight: 52 kg

DRUGS (8)
  1. FLUOROURACIL [Suspect]
     Indication: RECTAL CANCER
     Dosage: (396 MG/M2)
     Route: 040
     Dates: start: 20120717, end: 20120717
  2. ELPLAT [Suspect]
     Indication: RECTAL CANCER
     Dosage: 133.62 MG/BODY (84.1 MG/M2).
     Route: 041
     Dates: start: 20120717, end: 20120717
  3. MONOCLONAL ANTIBODIES [Concomitant]
  4. CALCIUM LEVOFOLINATE [Concomitant]
  5. MAGNESIUM SULFATE [Concomitant]
  6. FUTHAN [Concomitant]
  7. BLOOD AND RELATED PRODUCTS [Concomitant]
  8. PANITUMUMAB [Concomitant]

REACTIONS (8)
  - White blood cell count decreased [None]
  - Neutrophil count decreased [None]
  - Fall [None]
  - Pyrexia [None]
  - Blood creatinine increased [None]
  - Blood creatine phosphokinase increased [None]
  - Fibrin degradation products increased [None]
  - Decreased appetite [None]
